FAERS Safety Report 23903088 (Version 2)
Quarter: 2024Q2

REPORT INFORMATION
  Report Type: Spontaneous
  Country: US (occurrence: US)
  Receive Date: 20240527
  Receipt Date: 20240619
  Transmission Date: 20240716
  Serious: No
  Sender: FDA-Public Use
  Company Number: US-GLAXOSMITHKLINE-US2024AMR063528

PATIENT
  Sex: Female

DRUGS (1)
  1. ZEJULA [Suspect]
     Active Substance: NIRAPARIB
     Indication: Ovarian cancer
     Dosage: 200 MG, QD
     Route: 048
     Dates: start: 20240514

REACTIONS (8)
  - Blood pressure increased [Recovering/Resolving]
  - Initial insomnia [Recovering/Resolving]
  - Fatigue [Unknown]
  - Asthenia [Unknown]
  - Dyspnoea [Unknown]
  - Constipation [Recovering/Resolving]
  - Full blood count decreased [Recovering/Resolving]
  - Blood creatinine increased [Recovering/Resolving]
